FAERS Safety Report 7740212-2 (Version None)
Quarter: 2011Q3

REPORT INFORMATION
  Report Type: 
  Country: None (occurrence: None)
  Receive Date: 20110909
  Receipt Date: 20110909
  Transmission Date: 20111222
  Serious: Yes (Life-Threatening, Other)
  Sender: FDA-Public Use
  Company Number: None

PATIENT
  Sex: Male
  Weight: 83.3 kg

DRUGS (2)
  1. AZATHIOPRINE [Concomitant]
     Indication: CROHN'S DISEASE
     Dosage: 50 MG
     Route: 048
  2. INFLIXIMAB [Suspect]
     Indication: CROHN'S DISEASE
     Dosage: 5 MG/KG
     Route: 042

REACTIONS (1)
  - HISTOPLASMOSIS DISSEMINATED [None]
